FAERS Safety Report 8576076-7 (Version None)
Quarter: 2012Q3

REPORT INFORMATION
  Report Type: 
  Country: None (occurrence: None)
  Receive Date: 20120807
  Receipt Date: 20120727
  Transmission Date: 20120928
  Serious: No
  Sender: FDA-Public Use
  Company Number: US-B.I. PHARMACEUTICALS,INC./RIDGEFIELD-2012-BP-17027BP

PATIENT
  Sex: Male
  Weight: 45 kg

DRUGS (3)
  1. ALBUTEROL [Concomitant]
     Indication: LUNG DISORDER
     Route: 055
     Dates: start: 20110101, end: 20110719
  2. SPIRIVA [Suspect]
     Indication: LUNG DISORDER
     Dosage: 18 MCG
     Route: 055
     Dates: start: 20110101
  3. IPRATROPIUM BROMIDE [Suspect]
     Indication: LUNG DISORDER
     Route: 055
     Dates: start: 20110101, end: 20110719

REACTIONS (8)
  - VISION BLURRED [None]
  - MEMORY IMPAIRMENT [None]
  - VISUAL FIELD DEFECT [None]
  - APHASIA [None]
  - BLINDNESS [None]
  - DRY MOUTH [None]
  - CONFUSIONAL STATE [None]
  - ABNORMAL SENSATION IN EYE [None]
